FAERS Safety Report 18663893 (Version 1)
Quarter: 2020Q4

REPORT INFORMATION
  Report Type: Spontaneous
  Country: DE (occurrence: DE)
  Receive Date: 20201225
  Receipt Date: 20201225
  Transmission Date: 20210114
  Serious: Yes (Other)
  Sender: FDA-Public Use
  Company Number: DE-SHILPA MEDICARE LIMITED-SML-DE-2020-00876

PATIENT
  Age: 64 Year
  Sex: Male

DRUGS (10)
  1. DOCETAXEL, UNKNOWN [Suspect]
     Active Substance: DOCETAXEL
     Indication: LUNG NEOPLASM MALIGNANT
     Dosage: 75MG/M2 D1, REPEAT D 21
     Route: 042
     Dates: start: 202004
  2. NINTEDANIB [Suspect]
     Active Substance: NINTEDANIB
     Indication: LUNG NEOPLASM MALIGNANT
     Dosage: MAINTENANCE THERAPY
     Route: 048
     Dates: start: 202008
  3. NINTEDANIB [Suspect]
     Active Substance: NINTEDANIB
     Dosage: 200MG, TWICE DAILY, EXCEPT ON CX DAYS
     Route: 048
     Dates: start: 202004
  4. PEMETREXED DISODIUM [Suspect]
     Active Substance: PEMETREXED DISODIUM
     Indication: LUNG NEOPLASM MALIGNANT
     Dosage: 80 PERCENT OF DOSE 1, MAINTENANCE THERAPY
     Route: 042
     Dates: start: 202001
  5. PEMBROLIZUMAB. [Suspect]
     Active Substance: PEMBROLIZUMAB
     Dosage: 200 MG, REPEAT DAY 21, CYCLES 1 TO 4
     Route: 042
     Dates: start: 201908
  6. CARBOPLATIN. [Suspect]
     Active Substance: CARBOPLATIN
     Indication: LUNG NEOPLASM MALIGNANT
     Dosage: 80 PERCENT OF DOSE 1
     Route: 042
     Dates: start: 201910
  7. PEMETREXED DISODIUM [Suspect]
     Active Substance: PEMETREXED DISODIUM
     Dosage: 80 PERCENT OF DOSE 1
     Route: 042
     Dates: start: 201910
  8. CARBOPLATIN. [Suspect]
     Active Substance: CARBOPLATIN
     Dosage: AUC5 DAY1, REPEAT DAY 21
     Route: 042
     Dates: start: 201908
  9. PEMETREXED DISODIUM [Suspect]
     Active Substance: PEMETREXED DISODIUM
     Dosage: 500MG/M2 DAY1, REPEAT DAY21
     Route: 042
     Dates: start: 201908
  10. PEMBROLIZUMAB. [Suspect]
     Active Substance: PEMBROLIZUMAB
     Indication: LUNG NEOPLASM MALIGNANT
     Dosage: 200 MG, REPEAT DAY 21, MAINTENANCE THERAPY
     Route: 042
     Dates: start: 202001

REACTIONS (3)
  - Fatigue [Unknown]
  - Malignant neoplasm progression [Unknown]
  - Mucosal inflammation [Unknown]

NARRATIVE: CASE EVENT DATE: 2020
